FAERS Safety Report 6228668-8 (Version None)
Quarter: 2009Q2

REPORT INFORMATION
  Report Type: 
  Country: None (occurrence: None)
  Receive Date: 20090614
  Receipt Date: 20090604
  Transmission Date: 20091009
  Serious: Yes (Other)
  Sender: FDA-Public Use
  Company Number: PHHY2009JP22250

PATIENT
  Sex: Female
  Weight: 42 kg

DRUGS (7)
  1. SIMULECT [Suspect]
     Indication: RENAL TRANSPLANT
     Dosage: 20 MG, UNK
     Route: 042
     Dates: start: 20070221
  2. SIMULECT [Suspect]
     Dosage: 20 MG, UNK
     Dates: start: 20070225
  3. NEORAL [Suspect]
     Dosage: 300 MG, QD
     Route: 048
     Dates: start: 20070220
  4. CELLCEPT [Suspect]
     Indication: RENAL TRANSPLANT
     Dosage: 1500 MG, UNK
     Route: 048
     Dates: start: 20070215
  5. PREDNISOLONE [Concomitant]
     Indication: RENAL TRANSPLANT
     Dosage: 60 MG,
     Route: 048
     Dates: start: 20070220
  6. PARIET [Concomitant]
     Indication: PROPHYLAXIS AGAINST GASTROINTESTINAL ULCER
     Dosage: 1 DOSE DAILY
     Route: 048
     Dates: start: 20070225
  7. MAINTATE [Concomitant]
     Indication: HYPERTENSION
     Dosage: 2.5 MG, UNK
     Route: 048
     Dates: start: 20070221

REACTIONS (1)
  - HYPERAMYLASAEMIA [None]
